FAERS Safety Report 4576605-4 (Version None)
Quarter: 2005Q1

REPORT INFORMATION
  Report Type: 
  Country: None (occurrence: None)
  Receive Date: 20050127
  Receipt Date: 20041005
  Transmission Date: 20050727
  Serious: No
  Sender: FDA-Public Use
  Company Number: USA041080137

PATIENT
  Age: 14 Year
  Sex: Male
  Weight: 45 kg

DRUGS (3)
  1. STRATTERA [Suspect]
     Indication: ATTENTION DEFICIT/HYPERACTIVITY DISORDER
     Dosage: 18 MG
     Dates: start: 20041002
  2. FLUOXETINE [Concomitant]
  3. RITALIN LA [Concomitant]

REACTIONS (2)
  - ABNORMAL BEHAVIOUR [None]
  - DRUG INEFFECTIVE [None]
